FAERS Safety Report 22622584 (Version 1)
Quarter: 2023Q2

REPORT INFORMATION
  Report Type: Other
  Country: IR (occurrence: IR)
  Receive Date: 20230621
  Receipt Date: 20230621
  Transmission Date: 20230722
  Serious: Yes (Death, Hospitalization)
  Sender: FDA-Public Use
  Company Number: IR-ALVOGEN-2023091566

PATIENT
  Age: 64 Year
  Sex: Female

DRUGS (9)
  1. METHOTREXATE [Suspect]
     Active Substance: METHOTREXATE
     Indication: Rheumatoid arthritis
     Dosage: 15 MG PER WEEK, 7.5 MG ON THURSDAYS AND FRIDAYS
  2. METHOTREXATE [Suspect]
     Active Substance: METHOTREXATE
     Indication: Rheumatoid arthritis
     Dosage: 7.5MG OF MTX DAILY (INSTEAD OF 7.5 MG/WEEK) FOR 6 DAYS
  3. METHOTREXATE [Suspect]
     Active Substance: METHOTREXATE
     Indication: Rheumatoid arthritis
     Dosage: 15 MG PER WEEK, 7.5 MG ON THURSDAYS AND FRIDAYS
  4. METHOTREXATE [Suspect]
     Active Substance: METHOTREXATE
     Indication: Rheumatoid arthritis
     Dosage: 7.5MG OF MTX DAILY (INSTEAD OF 7.5 MG/WEEK) FOR 6 DAYS
  5. LEFLUNOMIDE [Concomitant]
     Active Substance: LEFLUNOMIDE
     Indication: Rheumatoid arthritis
     Dosage: 10 MG/DAY
  6. PREDNISOLONE [Concomitant]
     Active Substance: PREDNISOLONE
     Indication: Rheumatoid arthritis
     Dosage: 5 MG/DAY
  7. FOLIC ACID [Concomitant]
     Active Substance: FOLIC ACID
     Indication: Rheumatoid arthritis
     Dosage: 1 MG DAILY EXCEPT ON THURSDAYS AND FRIDAYS
  8. LOSARTAN [Concomitant]
     Active Substance: LOSARTAN
     Indication: Hypertension
  9. ATORVASTATIN [Concomitant]
     Active Substance: ATORVASTATIN
     Indication: Dyslipidaemia
     Dosage: 20 MG/DAY

REACTIONS (14)
  - Inappropriate schedule of product administration [Fatal]
  - Toxicity to various agents [Fatal]
  - Septic shock [Fatal]
  - Mouth ulceration [Unknown]
  - Haemorrhage [Unknown]
  - Odynophagia [Unknown]
  - Haemodynamic instability [Unknown]
  - Depressed level of consciousness [Unknown]
  - Abdominal pain [Unknown]
  - Pancytopenia [Unknown]
  - Pneumonia [Unknown]
  - Diarrhoea [Unknown]
  - Nausea [Unknown]
  - Vomiting [Unknown]
